FAERS Safety Report 6381956-7 (Version None)
Quarter: 2009Q3

REPORT INFORMATION
  Report Type: 
  Country: None (occurrence: None)
  Receive Date: 20090930
  Receipt Date: 20090917
  Transmission Date: 20100115
  Serious: Yes (Life-Threatening, Disabling)
  Sender: FDA-Public Use
  Company Number: GB-ROCHE-657458

PATIENT
  Age: 57 Year
  Sex: Female

DRUGS (3)
  1. TAMIFLU [Suspect]
     Indication: DRUG USE FOR UNKNOWN INDICATION
     Route: 065
     Dates: start: 20090819, end: 20090819
  2. OXCARBAZEPINE [Concomitant]
  3. LEVETIRACETAM [Concomitant]

REACTIONS (1)
  - EPILEPSY [None]
